FAERS Safety Report 11052360 (Version 1)
Quarter: 2015Q2

REPORT INFORMATION
  Report Type: Spontaneous
  Country: GB (occurrence: GB)
  Receive Date: 20150421
  Receipt Date: 20150421
  Transmission Date: 20150821
  Serious: Yes (Hospitalization)
  Sender: FDA-Public Use
  Company Number: GB-ASTELLAS-2015US010675

PATIENT
  Age: 59 Year
  Sex: Female

DRUGS (2)
  1. PROTOPIC [Suspect]
     Active Substance: TACROLIMUS
     Indication: BLEPHARITIS
  2. PROTOPIC [Suspect]
     Active Substance: TACROLIMUS
     Indication: EYE DISORDER
     Dosage: UNK UNK, UNKNOWN FREQ.
     Route: 065
     Dates: start: 20150326, end: 20150327

REACTIONS (10)
  - Eye disorder [Unknown]
  - Eye pain [Unknown]
  - Inappropriate schedule of drug administration [Unknown]
  - Application site pain [Unknown]
  - Product use issue [Unknown]
  - Drug prescribing error [Unknown]
  - Drug administered at inappropriate site [Unknown]
  - Condition aggravated [Unknown]
  - Burning sensation [Unknown]
  - Eyelid oedema [Recovered/Resolved]

NARRATIVE: CASE EVENT DATE: 20150326
